FAERS Safety Report 8347866-0 (Version None)
Quarter: 2012Q2

REPORT INFORMATION
  Report Type: 
  Country: None (occurrence: None)
  Receive Date: 20120509
  Receipt Date: 20120426
  Transmission Date: 20120825
  Serious: Yes (Hospitalization)
  Sender: FDA-Public Use
  Company Number: JP-ELI_LILLY_AND_COMPANY-JP201112003546

PATIENT
  Age: 83 Year
  Sex: Female

DRUGS (2)
  1. WARFARIN SODIUM [Concomitant]
     Dosage: UNK
     Route: 048
  2. FORTEO [Suspect]
     Dosage: UNK
     Route: 058
     Dates: start: 20110201

REACTIONS (1)
  - DEEP VEIN THROMBOSIS [None]
